FAERS Safety Report 8413269-3 (Version None)
Quarter: 2012Q2

REPORT INFORMATION
  Report Type: 
  Country: None (occurrence: None)
  Receive Date: 20120605
  Receipt Date: 20120601
  Transmission Date: 20120825
  Serious: No
  Sender: FDA-Public Use
  Company Number: US-TEVA-340966USA

PATIENT
  Sex: Male
  Weight: 66.284 kg

DRUGS (1)
  1. PROAIR HFA [Suspect]
     Indication: WHEEZING
     Dosage: 90 MICROGRAM; AND PRN
     Route: 055
     Dates: start: 20120101

REACTIONS (2)
  - THROAT IRRITATION [None]
  - COUGH [None]
